FAERS Safety Report 10649950 (Version 1)
Quarter: 2014Q4

REPORT INFORMATION
  Report Type: Spontaneous
  Country: US (occurrence: None)
  Receive Date: 20141205
  Receipt Date: 20141205
  Transmission Date: 20150529
  Serious: Yes (Hospitalization)
  Sender: FDA-Public Use
  Company Number: 163-POMAL-14093309

PATIENT
  Age: 82 Year
  Sex: Female
  Weight: 52.16 kg

DRUGS (13)
  1. MAGNESIUM (MAGNESIUM) [Concomitant]
     Active Substance: MAGNESIUM
  2. SPIRONOLACTONE. [Concomitant]
     Active Substance: SPIRONOLACTONE
  3. POMALYST [Suspect]
     Active Substance: POMALIDOMIDE
     Indication: PLASMA CELL MYELOMA
     Dosage: 21 IN 28 D
     Route: 048
     Dates: start: 20131231
  4. CALCIUM CARBONATE. [Concomitant]
     Active Substance: CALCIUM CARBONATE
  5. DIGOXIN. [Concomitant]
     Active Substance: DIGOXIN
  6. VALACYCLOVIR (VALACICLOVIR HYDROCHLORIDE) [Concomitant]
  7. WARFARIN SODIUM (WARFARIN SODIUM) [Concomitant]
     Active Substance: WARFARIN SODIUM
  8. ECOTRIN [Concomitant]
     Active Substance: ASPIRIN
  9. POTASSIUM GLUCONATE [Concomitant]
     Active Substance: POTASSIUM GLUCONATE
  10. MULTIVITAMINS (ERGOCALCIFEROL, ASCORBIC ACID, FOLIC ACID, THIAMINE HYDROCHLORIDE, RETINOL, RIBOFLAVIN, NICOTAMIDE, PANTHENOL) [Concomitant]
  11. CALCIUM PLUS  VITAMIN D (COLECALCIFEROL CALCIUM) [Concomitant]
  12. DEXAMETHASONE. [Concomitant]
     Active Substance: DEXAMETHASONE
  13. PROPAFENONE HCL (PROPAFENONE HYDROCHLORIDE) [Concomitant]

REACTIONS (3)
  - Asthenia [None]
  - Atrial fibrillation [None]
  - Blood calcium increased [None]

NARRATIVE: CASE EVENT DATE: 2014
